FAERS Safety Report 5916536-8 (Version None)
Quarter: 2008Q4

REPORT INFORMATION
  Report Type: 
  Country: None (occurrence: None)
  Receive Date: 20081013
  Receipt Date: 20081002
  Transmission Date: 20090506
  Serious: Yes (Death)
  Sender: FDA-Public Use
  Company Number: B0538888A

PATIENT
  Age: 73 Year
  Sex: Female

DRUGS (4)
  1. MELPHALAN [Suspect]
     Indication: AMYLOIDOSIS
     Dosage: 140MGM2 PER DAY
     Route: 042
  2. VINCRISTINE [Concomitant]
     Dosage: .4MG PER DAY
     Route: 065
  3. DOXORUBICIN HCL [Concomitant]
     Dosage: 9MGM2 PER DAY
     Route: 065
  4. DEXAMETHASONE [Concomitant]
     Dosage: 40MG PER DAY
     Route: 065

REACTIONS (4)
  - CARDIAC FAILURE [None]
  - CONDITION AGGRAVATED [None]
  - OEDEMA [None]
  - SYNCOPE [None]
